FAERS Safety Report 6698901-7 (Version None)
Quarter: 2010Q2

REPORT INFORMATION
  Report Type: 
  Country: None (occurrence: None)
  Receive Date: 20100426
  Receipt Date: 20100426
  Transmission Date: 20101027
  Serious: Yes (Other)
  Sender: FDA-Public Use
  Company Number: None

PATIENT
  Age: 46 Year
  Sex: Male
  Weight: 101.6057 kg

DRUGS (1)
  1. ELSPAR [Suspect]
     Indication: LYMPHOMA
     Dosage: 13,800 UNITS TWICE WEEKLY SQ
     Route: 058
     Dates: start: 20100412, end: 20100415

REACTIONS (6)
  - BLISTER [None]
  - INJECTION SITE ERYTHEMA [None]
  - INJECTION SITE INDURATION [None]
  - INJECTION SITE PAIN [None]
  - PIGMENTATION DISORDER [None]
  - PURULENCE [None]
